FAERS Safety Report 12642316 (Version 1)
Quarter: 2016Q3

REPORT INFORMATION
  Report Type: Spontaneous
  Country: US (occurrence: US)
  Receive Date: 20160810
  Receipt Date: 20160810
  Transmission Date: 20161109
  Serious: Yes (Hospitalization)
  Sender: FDA-Public Use
  Company Number: DE-ASTRAZENECA-2016SE83318

PATIENT
  Age: 33 Year
  Sex: Male

DRUGS (5)
  1. SILDENAFIL. [Concomitant]
     Active Substance: SILDENAFIL
  2. TESTOSTERONE PROPIONATE. [Concomitant]
     Active Substance: TESTOSTERONE PROPIONATE
     Route: 042
  3. OMEPRAZOLE. [Suspect]
     Active Substance: OMEPRAZOLE
     Route: 048
  4. POTASSIUM CHLORIDE. [Concomitant]
     Active Substance: POTASSIUM CHLORIDE
  5. LOSARTAN. [Concomitant]
     Active Substance: LOSARTAN

REACTIONS (5)
  - Renal tubular acidosis [Recovered/Resolved]
  - Product use issue [Unknown]
  - Fatigue [Unknown]
  - Weight decreased [Unknown]
  - Tubulointerstitial nephritis [Recovered/Resolved]
